FAERS Safety Report 23943751 (Version 4)
Quarter: 2024Q3

REPORT INFORMATION
  Report Type: Spontaneous
  Country: US (occurrence: US)
  Receive Date: 20240606
  Receipt Date: 20240716
  Transmission Date: 20241017
  Serious: No
  Sender: BOEHRINGER INGELHEIM
  Company Number: US-BoehringerIngelheim-2024-BI-032226

PATIENT
  Sex: Female

DRUGS (2)
  1. SPIRIVA RESPIMAT [Suspect]
     Active Substance: TIOTROPIUM BROMIDE
     Indication: Asthma
     Dosage: 2 SPRAYS IN THE MORNING ONLY?LOT NUM - 303721B, 302681I, 303765, 304032A, 205184D, E80642, 303948C,
  2. Breyna Inhaler [Concomitant]
     Indication: Product used for unknown indication
     Dosage: INHALER

REACTIONS (2)
  - Dyspnoea [Not Recovered/Not Resolved]
  - Intentional product use issue [Unknown]
